FAERS Safety Report 17497893 (Version 1)
Quarter: 2020Q1

REPORT INFORMATION
  Report Type: Spontaneous
  Country: US (occurrence: US)
  Receive Date: 20200304
  Receipt Date: 20200304
  Transmission Date: 20200409
  Serious: No
  Sender: FDA-Public Use
  Company Number: US-ASTRAZENECA-2020SE20469

PATIENT
  Sex: Male
  Weight: 110.7 kg

DRUGS (3)
  1. BYDUREON BCISE [Suspect]
     Active Substance: EXENATIDE
     Indication: BLOOD GLUCOSE ABNORMAL
     Route: 065
     Dates: start: 2019
  2. LEVEMIR [Concomitant]
     Active Substance: INSULIN DETEMIR
     Dosage: 44 UNITS- AT NIGHT
     Route: 065
  3. BYDUREON [Suspect]
     Active Substance: EXENATIDE
     Indication: BLOOD GLUCOSE ABNORMAL
     Dosage: 2.0MG UNKNOWN
     Route: 065
     Dates: start: 2018, end: 2019

REACTIONS (7)
  - Injection site erythema [Unknown]
  - Injection site pain [Unknown]
  - Device defective [Unknown]
  - Blood glucose abnormal [Unknown]
  - Device leakage [Unknown]
  - Incorrect dose administered by device [Unknown]
  - Intentional product misuse [Unknown]
